FAERS Safety Report 5333111-7 (Version None)
Quarter: 2007Q2

REPORT INFORMATION
  Report Type: 
  Country: None (occurrence: None)
  Receive Date: 20070521
  Receipt Date: 20070521
  Transmission Date: 20071010
  Serious: Yes (Hospitalization)
  Sender: FDA-Public Use
  Company Number: None

PATIENT
  Sex: Male
  Weight: 103 kg

DRUGS (3)
  1. FLUOROURACIL [Suspect]
     Indication: MALIGNANT PALATE NEOPLASM
     Dosage: 600 MG/M2 IV QOW 5D
     Route: 042
     Dates: start: 20070506, end: 20070511
  2. HYDREA [Suspect]
     Indication: MALIGNANT PALATE NEOPLASM
     Dosage: 500MG/M2 PO BID
     Route: 048
     Dates: start: 20070506, end: 20070507
  3. CETUXIMAB 250MG/M2 IV QW 5/15/07 [Suspect]
     Route: 042

REACTIONS (4)
  - INADEQUATE ANALGESIA [None]
  - MUCOSAL INFLAMMATION [None]
  - ORAL INTAKE REDUCED [None]
  - SOMNOLENCE [None]
